FAERS Safety Report 23973248 (Version 3)
Quarter: 2024Q3

REPORT INFORMATION
  Report Type: Report from Study
  Country: GB (occurrence: GB)
  Receive Date: 20240613
  Receipt Date: 20240703
  Transmission Date: 20241017
  Serious: Yes (Other)
  Sender: APELLIS PHARMACEUTICALS
  Company Number: GB-BIOVITRUM-2024-GB-001679

PATIENT

DRUGS (1)
  1. PEGCETACOPLAN [Suspect]
     Active Substance: PEGCETACOPLAN
     Indication: Paroxysmal nocturnal haemoglobinuria
     Dosage: 1080MG, EVERY 2 WEEKS
     Route: 058
     Dates: start: 202401

REACTIONS (12)
  - Syncope [Unknown]
  - Loss of consciousness [Unknown]
  - Intentional product misuse [Not Recovered/Not Resolved]
  - Hypertension [Unknown]
  - Nasopharyngitis [Unknown]
  - Pollakiuria [Unknown]
  - Fatigue [Unknown]
  - Acarodermatitis [Unknown]
  - Fall [Unknown]
  - Dizziness [Unknown]
  - Body temperature increased [Unknown]
  - Renal impairment [Unknown]

NARRATIVE: CASE EVENT DATE: 20240101
